FAERS Safety Report 8978420 (Version 1)
Quarter: 2012Q4

REPORT INFORMATION
  Report Type: 
  Country: US (occurrence: US)
  Receive Date: 20121221
  Receipt Date: 20121221
  Transmission Date: 20130627
  Serious: Yes (Other)
  Sender: FDA-Public Use
  Company Number: US-ENDO PHARMACEUTICALS INC.-VANT20120088

PATIENT
  Sex: Male

DRUGS (2)
  1. VANTAS [Suspect]
     Indication: PROSTATE CANCER
     Route: 058
  2. LUPRON DEPOT [Suspect]
     Indication: PROSTATE CANCER
     Route: 065
     Dates: start: 2002, end: 2010

REACTIONS (3)
  - Prostate cancer recurrent [Recovered/Resolved]
  - Osteoporosis [Unknown]
  - Pelvic fracture [Unknown]
